FAERS Safety Report 18239406 (Version 1)
Quarter: 2020Q3

REPORT INFORMATION
  Report Type: Spontaneous
  Country: FR (occurrence: FR)
  Receive Date: 20200907
  Receipt Date: 20200907
  Transmission Date: 20201103
  Serious: Yes (Life-Threatening, Hospitalization)
  Sender: FDA-Public Use
  Company Number: FR-ROCHE-2672092

PATIENT
  Age: 66 Year
  Sex: Female
  Weight: 106 kg

DRUGS (3)
  1. TECENTRIQ [Suspect]
     Active Substance: ATEZOLIZUMAB
     Indication: SMALL CELL LUNG CANCER METASTATIC
     Route: 041
     Dates: start: 20200430, end: 20200731
  2. ETOPOSIDE. [Concomitant]
     Active Substance: ETOPOSIDE
     Indication: SMALL CELL LUNG CANCER METASTATIC
  3. CARBOPLATINE [Concomitant]
     Active Substance: CARBOPLATIN
     Indication: SMALL CELL LUNG CANCER METASTATIC

REACTIONS (1)
  - Dermatomyositis [Not Recovered/Not Resolved]

NARRATIVE: CASE EVENT DATE: 20200814
